FAERS Safety Report 5453986-0 (Version None)
Quarter: 2007Q3

REPORT INFORMATION
  Report Type: 
  Country: None (occurrence: None)
  Receive Date: 20070917
  Receipt Date: 20070228
  Transmission Date: 20080115
  Serious: No
  Sender: FDA-Public Use
  Company Number: US-ASTRAZENECA-2006UW03028

PATIENT
  Sex: Female
  Weight: 81.8 kg

DRUGS (2)
  1. SEROQUEL [Suspect]
     Indication: PSYCHOTIC DISORDER
     Dosage: 100MG, 200MG, 300MG
     Route: 048
     Dates: start: 20040416, end: 20060113
  2. RISPERDAL [Suspect]

REACTIONS (2)
  - DIABETES MELLITUS [None]
  - SEXUAL DYSFUNCTION [None]
